FAERS Safety Report 8712761 (Version 3)
Quarter: 2013Q1

REPORT INFORMATION
  Report Type: Spontaneous
  Country: BR (occurrence: None)
  Receive Date: 20120724
  Receipt Date: 20130117
  Transmission Date: 20140127
  Serious: Yes (Death, Hospitalization)
  Sender: FDA-Public Use
  Company Number: ENTC2012-0314

PATIENT
  Sex: Female

DRUGS (2)
  1. STALEVO [Suspect]
     Indication: PARKINSON^S DISEASE
     Dosage: 3 DF
  2. STALEVO [Suspect]
     Indication: DEMENTIA ALZHEIMER^S TYPE
     Dosage: 3 DF

REACTIONS (5)
  - Death [None]
  - Cardiac arrest [None]
  - Pneumonia [None]
  - Coma [None]
  - Dyspnoea [None]
